FAERS Safety Report 8506152-6 (Version None)
Quarter: 2012Q3

REPORT INFORMATION
  Report Type: 
  Country: None (occurrence: None)
  Receive Date: 20120712
  Receipt Date: 20120710
  Transmission Date: 20120928
  Serious: No
  Sender: FDA-Public Use
  Company Number: US-B.I. PHARMACEUTICALS,INC./RIDGEFIELD-2012-BP-13733BP

PATIENT
  Sex: Male
  Weight: 92.99 kg

DRUGS (4)
  1. OXYCONTIN [Concomitant]
     Indication: ARTHRALGIA
     Dates: start: 20110601
  2. VALIUM [Concomitant]
  3. PRADAXA [Suspect]
     Indication: ATRIAL FIBRILLATION
     Dosage: 300 MG
     Route: 048
     Dates: start: 20120608, end: 20120611
  4. PRADAXA [Suspect]
     Dosage: 150 MG
     Route: 048
     Dates: start: 20120612

REACTIONS (4)
  - PRURITUS [None]
  - MELAENA [None]
  - DYSPNOEA [None]
  - CONSTIPATION [None]
